FAERS Safety Report 4619953-1 (Version None)
Quarter: 2005Q1

REPORT INFORMATION
  Report Type: 
  Country: None (occurrence: None)
  Receive Date: 20050324
  Receipt Date: 20050315
  Transmission Date: 20050727
  Serious: Yes (Death, Other)
  Sender: FDA-Public Use
  Company Number: 2004-11-1572

PATIENT
  Age: 64 Year
  Sex: Female
  Weight: 63 kg

DRUGS (12)
  1. TEMODAL [Suspect]
     Indication: GLIOBLASTOMA
     Dosage: SEE IMAGE
     Route: 048
     Dates: start: 20031210, end: 20031216
  2. TEMODAL [Suspect]
     Indication: GLIOBLASTOMA
     Dosage: SEE IMAGE
     Route: 048
     Dates: start: 20031221, end: 20031229
  3. TEMODAL [Suspect]
     Indication: GLIOBLASTOMA
     Dosage: SEE IMAGE
     Route: 048
     Dates: start: 20040108, end: 20040115
  4. TEMODAL [Suspect]
     Indication: GLIOBLASTOMA
     Dosage: SEE IMAGE
     Route: 048
     Dates: start: 20040129, end: 20040204
  5. RADIATION THERAPY [Concomitant]
  6. CALCITRIOL [Concomitant]
  7. DEROXAT [Concomitant]
  8. ESTROGENS [Concomitant]
  9. UTROGESTAN (MICRONIZED ORAL PROGESTERONE) [Concomitant]
  10. POTASSIUM CHLORIDE [Concomitant]
  11. OMEPRAZOLE [Concomitant]
  12. METHYLPREDNISOLONE [Concomitant]

REACTIONS (5)
  - APLASIA [None]
  - GLIOBLASTOMA [None]
  - INTRACRANIAL PRESSURE INCREASED [None]
  - MALIGNANT NEOPLASM PROGRESSION [None]
  - THROMBOCYTOPENIA [None]
